FAERS Safety Report 6932217-6 (Version None)
Quarter: 2010Q3

REPORT INFORMATION
  Report Type: 
  Country: None (occurrence: None)
  Receive Date: 20100819
  Receipt Date: 20100804
  Transmission Date: 20110219
  Serious: Yes (Other)
  Sender: FDA-Public Use
  Company Number: PHHY2010CN51262

PATIENT
  Age: 69 Year
  Sex: Female
  Weight: 66 kg

DRUGS (2)
  1. SEBIVO [Suspect]
     Indication: HEPATITIS B
     Dosage: ONE TABLET QD
     Route: 048
     Dates: start: 20090201, end: 20100803
  2. HEPSERA [Concomitant]
     Dosage: UNK
     Dates: start: 20090201

REACTIONS (6)
  - ASTHENIA [None]
  - DECREASED APPETITE [None]
  - MARASMUS [None]
  - NAUSEA [None]
  - VOMITING [None]
  - WEIGHT DECREASED [None]
